FAERS Safety Report 7540405-3 (Version None)
Quarter: 2011Q2

REPORT INFORMATION
  Report Type: 
  Country: None (occurrence: None)
  Receive Date: 20110610
  Receipt Date: 20110530
  Transmission Date: 20111010
  Serious: Yes (Other)
  Sender: FDA-Public Use
  Company Number: FR-ELI_LILLY_AND_COMPANY-FR201104006086

PATIENT
  Age: 51 Year
  Sex: Male
  Weight: 78 kg

DRUGS (7)
  1. ANTIHISTAMINES [Concomitant]
  2. STATIN                             /00084401/ [Concomitant]
     Dosage: UNK, UNKNOWN
     Route: 065
  3. EFFIENT [Suspect]
     Dosage: 10 MG, QD
     Route: 048
     Dates: start: 20110414
  4. ASPIRIN [Concomitant]
     Indication: ANGIOPLASTY
     Dosage: 75 MG, QD
  5. BETA BLOCKING AGENTS [Concomitant]
     Dosage: UNK, UNKNOWN
     Route: 065
  6. EFFIENT [Suspect]
     Indication: ANGIOPLASTY
     Dosage: 60 MG, UNK
     Route: 048
     Dates: start: 20110413, end: 20110413
  7. ENZYME INHIBITORS [Concomitant]
     Dosage: UNK, UNKNOWN
     Route: 065

REACTIONS (1)
  - URTICARIA [None]
